FAERS Safety Report 12689101 (Version 1)
Quarter: 2016Q3

REPORT INFORMATION
  Report Type: Report from Study
  Country: US (occurrence: US)
  Receive Date: 20160826
  Receipt Date: 20160826
  Transmission Date: 20161109
  Serious: Yes (Death, Other)
  Sender: FDA-Public Use
  Company Number: US-ACCORD-043387

PATIENT
  Age: 63 Year
  Sex: Female

DRUGS (4)
  1. METHOTREXATE/METHOTREXATE SODIUM [Concomitant]
     Indication: NERVOUS SYSTEM DISORDER
     Dosage: DAY 7
     Route: 037
  2. ETOPOSIDE. [Suspect]
     Active Substance: ETOPOSIDE
     Indication: T-CELL TYPE ACUTE LEUKAEMIA
     Dosage: DAILY DAYS 7 TO 11 (CYCLICAL)
  3. NELARABINE [Suspect]
     Active Substance: NELARABINE
     Indication: T-CELL TYPE ACUTE LEUKAEMIA
     Dosage: DAILY DAYS 1 TO 5 (CYCLICAL)
  4. CYCLOPHOSPHAMIDE/CYCLOPHOSPHAMIDE MONOHYDRATE [Suspect]
     Active Substance: CYCLOPHOSPHAMIDE
     Indication: T-CELL TYPE ACUTE LEUKAEMIA
     Dosage: DAILY DAYS 7 TO 11 (CYCLICAL)

REACTIONS (3)
  - Toxicity to various agents [Fatal]
  - Sepsis [Fatal]
  - Off label use [Unknown]
